FAERS Safety Report 21907742 (Version 1)
Quarter: 2023Q1

REPORT INFORMATION
  Report Type: Report from Study
  Country: BG (occurrence: BG)
  Receive Date: 20230125
  Receipt Date: 20230125
  Transmission Date: 20230417
  Serious: Yes (Hospitalization, Other)
  Sender: FDA-Public Use
  Company Number: BG-002147023-NVSC2023BG012765

PATIENT
  Age: 40 Year
  Sex: Female
  Weight: 70 kg

DRUGS (2)
  1. MAYZENT [Suspect]
     Active Substance: SIPONIMOD
     Indication: Secondary progressive multiple sclerosis
     Dosage: UNK (INITIATING DOSE FOR 5 DAYS)
     Route: 048
     Dates: start: 20230105, end: 20230110
  2. MAYZENT [Suspect]
     Active Substance: SIPONIMOD
     Dosage: 2 MG, QD (FOR 2 DAYS)
     Route: 048
     Dates: start: 20230110, end: 20230112

REACTIONS (9)
  - Musculoskeletal stiffness [Not Recovered/Not Resolved]
  - Gait disturbance [Not Recovered/Not Resolved]
  - Viral infection [Not Recovered/Not Resolved]
  - Febrile infection [Not Recovered/Not Resolved]
  - Pelvic floor dysfunction [Not Recovered/Not Resolved]
  - Paraparesis [Unknown]
  - Asthenia [Not Recovered/Not Resolved]
  - Lymphopenia [Not Recovered/Not Resolved]
  - Neurological decompensation [Unknown]

NARRATIVE: CASE EVENT DATE: 20230112
